FAERS Safety Report 11526085 (Version 1)
Quarter: 2015Q3

REPORT INFORMATION
  Report Type: Spontaneous
  Country: US (occurrence: US)
  Receive Date: 20150918
  Receipt Date: 20150918
  Transmission Date: 20151125
  Serious: Yes (Other)
  Sender: FDA-Public Use
  Company Number: US-TAKEDA-TPA2012A07121

PATIENT

DRUGS (8)
  1. GLUCOPHAGE [Concomitant]
     Active Substance: METFORMIN HYDROCHLORIDE
     Dates: start: 1990
  2. METFORMIN [Concomitant]
     Active Substance: METFORMIN HYDROCHLORIDE
     Dates: start: 1990
  3. LEVEMIR [Concomitant]
     Active Substance: INSULIN DETEMIR
     Dates: start: 20111111
  4. AMARYL [Concomitant]
     Active Substance: GLIMEPIRIDE
     Dates: start: 1990, end: 201110
  5. JANUVIA [Concomitant]
     Active Substance: SITAGLIPTIN PHOSPHATE
     Dates: start: 200708, end: 201006
  6. ACTOS [Suspect]
     Active Substance: PIOGLITAZONE HYDROCHLORIDE
     Indication: TYPE 2 DIABETES MELLITUS
     Dates: start: 200608, end: 201108
  7. DIABETA                            /00145301/ [Concomitant]
     Dates: start: 20040720, end: 200411
  8. NOVOLOG [Concomitant]
     Active Substance: INSULIN ASPART
     Dates: start: 2011

REACTIONS (1)
  - Transitional cell carcinoma [Unknown]

NARRATIVE: CASE EVENT DATE: 20100910
